FAERS Safety Report 10056311 (Version 2)
Quarter: 2014Q2

REPORT INFORMATION
  Report Type: Spontaneous
  Country: US (occurrence: US)
  Receive Date: 20140403
  Receipt Date: 20140429
  Transmission Date: 20141212
  Serious: No
  Sender: FDA-Public Use
  Company Number: US-009507513-1403USA013152

PATIENT
  Age: 55 Year
  Sex: Female

DRUGS (6)
  1. REBETOL [Suspect]
     Indication: HEPATITIS C
     Dosage: 7 DF, QD
     Route: 048
     Dates: start: 20030117, end: 20031219
  2. PEGASYS [Suspect]
     Indication: HEPATITIS C
     Dosage: 0.5 ML, QW
     Dates: start: 20030117, end: 20031219
  3. LEVOTHYROXINE SODIUM [Concomitant]
     Dosage: 1 DF, QD
  4. HYDROCHLOROTHIAZIDE (+) LISINOPRIL [Concomitant]
     Dosage: 1 DF, QD
  5. VITAMINS (UNSPECIFIED) [Concomitant]
     Dosage: 1 DF, QD
  6. CALCIUM (UNSPECIFIED) [Concomitant]
     Dosage: 1200 MG, QD

REACTIONS (2)
  - Drug ineffective [Unknown]
  - Therapeutic response decreased [Unknown]
